FAERS Safety Report 5187895-1 (Version None)
Quarter: 2006Q4

REPORT INFORMATION
  Report Type: 
  Country: None (occurrence: None)
  Receive Date: 20061221
  Receipt Date: 20061211
  Transmission Date: 20070319
  Serious: Yes (Other)
  Sender: FDA-Public Use
  Company Number: PHNU2006DE04130

PATIENT
  Age: 37 Year
  Sex: Male

DRUGS (1)
  1. LEPONEX [Suspect]
     Indication: SCHIZOPHRENIA
     Dosage: 800 MG/DAY
     Route: 048
     Dates: start: 20050101

REACTIONS (3)
  - MIDDLE INSOMNIA [None]
  - SALIVARY HYPERSECRETION [None]
  - SUFFOCATION FEELING [None]
